FAERS Safety Report 20140912 (Version 1)
Quarter: 2021Q4

REPORT INFORMATION
  Report Type: Spontaneous
  Country: US (occurrence: None)
  Receive Date: 20211202
  Receipt Date: 20211202
  Transmission Date: 20220303
  Serious: No
  Sender: FDA-Public Use
  Company Number: 2021A800872

PATIENT
  Sex: Female
  Weight: 81.6 kg

DRUGS (1)
  1. FARXIGA [Suspect]
     Active Substance: DAPAGLIFLOZIN PROPANEDIOL
     Indication: Blood glucose abnormal
     Route: 048
     Dates: start: 202107, end: 202108

REACTIONS (5)
  - Vulvovaginal pruritus [Unknown]
  - Asthenia [Unknown]
  - Vulvovaginal dryness [Unknown]
  - Fungal infection [Recovered/Resolved]
  - Intentional dose omission [Unknown]
